FAERS Safety Report 8373630-2 (Version None)
Quarter: 2012Q2

REPORT INFORMATION
  Report Type: 
  Country: None (occurrence: None)
  Receive Date: 20120517
  Receipt Date: 20120426
  Transmission Date: 20120825
  Serious: Yes (Hospitalization, Other)
  Sender: FDA-Public Use
  Company Number: GB-023543

PATIENT
  Age: 62 Year
  Sex: Male
  Weight: 60.5 kg

DRUGS (1)
  1. CHLORAMBUCIL (CHLORAMBUCIL)(UNKNOWN) [Suspect]
     Indication: CHRONIC LYMPHOCYTIC LEUKAEMIA
     Dosage: 10MGM2 PER DAY (10 MG/M2,1), ORAL
     Route: 048
     Dates: start: 20110308

REACTIONS (3)
  - EMPYEMA [None]
  - MALAISE [None]
  - CHEST PAIN [None]
